FAERS Safety Report 4870289-3 (Version None)
Quarter: 2005Q4

REPORT INFORMATION
  Report Type: 
  Country: None (occurrence: None)
  Receive Date: 20051228
  Receipt Date: 20051212
  Transmission Date: 20060501
  Serious: Yes (Hospitalization)
  Sender: FDA-Public Use
  Company Number: MEDI-0003940

PATIENT
  Age: 8 Month
  Sex: Female

DRUGS (3)
  1. SYNAGIS [Suspect]
     Indication: ANTIVIRAL PROPHYLAXIS
     Dosage: 1 IN 30 D, INTRAMUSCULAR
     Route: 030
     Dates: start: 20051123, end: 20051123
  2. INFLUENZA VIRUS VACCINATION (INFLUENZA VIRUS VACCINE POLYVALENT) [Concomitant]
  3. QUINTUPLE VACCINATION [Concomitant]

REACTIONS (4)
  - ADENOVIRUS INFECTION [None]
  - DIARRHOEA [None]
  - TRANSAMINASES INCREASED [None]
  - VOMITING [None]
